FAERS Safety Report 5747268-7 (Version None)
Quarter: 2008Q2

REPORT INFORMATION
  Report Type: 
  Country: None (occurrence: None)
  Receive Date: 20080520
  Receipt Date: 20080507
  Transmission Date: 20081010
  Serious: Yes (Other)
  Sender: FDA-Public Use
  Company Number: 027503

PATIENT
  Age: 55 Year
  Sex: Female
  Weight: 46.3 kg

DRUGS (4)
  1. LEUCOVORIN CALCIUM [Suspect]
     Indication: FOLATE DEFICIENCY
     Dosage: 2 TABLET, QD, ORAL
     Route: 048
     Dates: start: 20080401
  2. DARAPRIM [Concomitant]
  3. TETRACYCLINE [Concomitant]
  4. CLINDAMYCIN HCL [Concomitant]

REACTIONS (4)
  - BLOOD SODIUM DECREASED [None]
  - DYSPNOEA [None]
  - KIDNEY INFECTION [None]
  - RENAL PAIN [None]
